FAERS Safety Report 9458450 (Version 1)
Quarter: 2013Q3

REPORT INFORMATION
  Report Type: Spontaneous
  Country: GB (occurrence: GB)
  Receive Date: 20130814
  Receipt Date: 20130814
  Transmission Date: 20140515
  Serious: Yes (Death)
  Sender: FDA-Public Use
  Company Number: GB-CELGENEUS-167-21880-13080056

PATIENT
  Sex: Male
  Weight: 87 kg

DRUGS (2)
  1. REVLIMID [Suspect]
     Indication: PLASMA CELL MYELOMA RECURRENT
     Route: 048
     Dates: start: 20130705
  2. DEXAMETHASONE [Concomitant]
     Indication: PLASMA CELL MYELOMA RECURRENT
     Dosage: 40 MILLIGRAM
     Route: 065
     Dates: start: 20130705

REACTIONS (1)
  - General physical health deterioration [Fatal]
